FAERS Safety Report 16902003 (Version 2)
Quarter: 2019Q4

REPORT INFORMATION
  Report Type: Report from Study
  Country: None (occurrence: SE)
  Receive Date: 20191010
  Receipt Date: 20191015
  Transmission Date: 20200122
  Serious: Yes (Death, Hospitalization)
  Sender: FDA-Public Use
  Company Number: SE-ABBVIE-19K-150-2955091-00

PATIENT
  Age: 71 Year
  Sex: Female
  Weight: 42 kg

DRUGS (2)
  1. DUODOPA [Suspect]
     Active Substance: CARBIDOPA\LEVODOPA
     Indication: PARKINSON^S DISEASE
     Route: 050
     Dates: start: 20160419, end: 2016
  2. DUODOPA [Suspect]
     Active Substance: CARBIDOPA\LEVODOPA
     Route: 050
     Dates: start: 20160512

REACTIONS (6)
  - Sepsis [Fatal]
  - General physical health deterioration [Not Recovered/Not Resolved]
  - Fall [Unknown]
  - Upper limb fracture [Recovered/Resolved]
  - Terminal state [Not Recovered/Not Resolved]
  - Hip fracture [Not Recovered/Not Resolved]

NARRATIVE: CASE EVENT DATE: 201909
